FAERS Safety Report 24809570 (Version 1)
Quarter: 2025Q1

REPORT INFORMATION
  Report Type: Spontaneous
  Country: FR (occurrence: FR)
  Receive Date: 20250106
  Receipt Date: 20250106
  Transmission Date: 20250408
  Serious: Yes (Other)
  Sender: AUROBINDO
  Company Number: FR-AUROBINDO-AUR-APL-2025-000076

PATIENT
  Age: 63 Year
  Sex: Male

DRUGS (2)
  1. AZACITIDINE [Suspect]
     Active Substance: AZACITIDINE
     Indication: Acute myeloid leukaemia
     Route: 065
  2. OLUTASIDENIB [Suspect]
     Active Substance: OLUTASIDENIB
     Indication: Acute myeloid leukaemia
     Dosage: 150 MILLIGRAM, TWO TIMES A DAY
     Route: 048

REACTIONS (1)
  - Therapy non-responder [Unknown]
